FAERS Safety Report 10469356 (Version 1)
Quarter: 2014Q3

REPORT INFORMATION
  Report Type: Spontaneous
  Country: US (occurrence: None)
  Receive Date: 20140919
  Receipt Date: 20140919
  Transmission Date: 20150326
  Serious: Yes (Death, Hospitalization, Other)
  Sender: FDA-Public Use
  Company Number: NL01PV14.37266

PATIENT
  Age: 46 Year
  Sex: Female

DRUGS (4)
  1. AMLODIPINE [Suspect]
     Active Substance: AMLODIPINE BESYLATE
     Dosage: UNK
  2. ATENOLOL (ATENOLOL) [Suspect]
     Active Substance: ATENOLOL
     Dosage: UNK
  3. FAT EMULSION NOS [Suspect]
     Active Substance: EGG PHOSPHOLIPIDS\SAFFLOWER OIL\SOYBEAN OIL
     Dosage: 1.5 ML/KG OF 20% IFE, IV BOLUS
     Route: 040
  4. ZOLPIDEM [Suspect]
     Active Substance: ZOLPIDEM\ZOLPIDEM TARTRATE
     Dosage: UNK

REACTIONS (9)
  - Renal failure [None]
  - Mean arterial pressure decreased [None]
  - Overdose [None]
  - Multi-organ failure [None]
  - Laboratory test interference [None]
  - Lactic acidosis [None]
  - Cardiac arrest [None]
  - Intestinal ischaemia [None]
  - Haemodialysis complication [None]
